FAERS Safety Report 12854278 (Version 1)
Quarter: 2016Q4

REPORT INFORMATION
  Report Type: Spontaneous
  Country: US (occurrence: US)
  Receive Date: 20161017
  Receipt Date: 20161017
  Transmission Date: 20170207
  Serious: No
  Sender: FDA-Public Use
  Company Number: US-PFIZER INC-2016480384

PATIENT
  Sex: Female

DRUGS (1)
  1. LATANOPROST. [Suspect]
     Active Substance: LATANOPROST
     Dosage: 5% 1 DROP IN BOTH EYES EVERY DAY AT BEDTIME
     Route: 047

REACTIONS (2)
  - Eye irritation [Unknown]
  - Product quality issue [Unknown]
